FAERS Safety Report 8507705-1 (Version None)
Quarter: 2012Q3

REPORT INFORMATION
  Report Type: 
  Country: None (occurrence: None)
  Receive Date: 20120713
  Receipt Date: 20120704
  Transmission Date: 20120928
  Serious: Yes (Death, Hospitalization)
  Sender: FDA-Public Use
  Company Number: SE-009507513-1207SWE000664

PATIENT

DRUGS (5)
  1. ASPIRIN [Concomitant]
     Route: 048
  2. OMEPRAZOLE [Suspect]
     Dosage: UNK
     Route: 048
     Dates: start: 20090701
  3. SIMVASTATIN [Suspect]
     Dosage: UNK
     Route: 048
     Dates: start: 20090630, end: 20090701
  4. NITROMEX [Concomitant]
     Route: 048
  5. METOPROLOL SUCCINATE [Concomitant]
     Route: 048

REACTIONS (1)
  - TUBULOINTERSTITIAL NEPHRITIS [None]
